FAERS Safety Report 9694976 (Version 2)
Quarter: 2013Q4

REPORT INFORMATION
  Report Type: Spontaneous
  Country: GB (occurrence: GB)
  Receive Date: 20131119
  Receipt Date: 20131205
  Transmission Date: 20140711
  Serious: No
  Sender: FDA-Public Use
  Company Number: GB-BRISTOL-MYERS SQUIBB COMPANY-19829746

PATIENT
  Age: 51 Year
  Sex: Female

DRUGS (1)
  1. ERBITUX SOLN FOR INF [Suspect]
     Dosage: INJECTION
     Route: 042

REACTIONS (1)
  - VIIth nerve paralysis [Unknown]
